FAERS Safety Report 4514752-3 (Version None)
Quarter: 2004Q4

REPORT INFORMATION
  Report Type: 
  Country: None (occurrence: None)
  Receive Date: 20041201
  Receipt Date: 20041119
  Transmission Date: 20050328
  Serious: Yes (Other)
  Sender: FDA-Public Use
  Company Number: US-JNJFOC-20041105411

PATIENT
  Sex: Female
  Weight: 55.79 kg

DRUGS (17)
  1. REMICADE [Suspect]
     Route: 042
  2. REMICADE [Suspect]
     Indication: RHEUMATOID ARTHRITIS
     Route: 042
  3. AMBIEN [Concomitant]
     Dosage: AT BEDTIME
     Route: 049
  4. ATROVENT [Concomitant]
     Dosage: 2 PUFFS
  5. COUMADIN [Concomitant]
  6. DIGITEK [Concomitant]
  7. FOLIC ACID [Concomitant]
  8. HYDROXYZINE [Concomitant]
  9. LASIX [Concomitant]
  10. LOTRISONE [Concomitant]
  11. LOTRISONE [Concomitant]
  12. METHOTREXATE [Concomitant]
  13. PAXIL [Concomitant]
  14. PHENERGAN [Concomitant]
  15. PREDNISONE [Concomitant]
  16. PROTONIX [Concomitant]
  17. REGLAN [Concomitant]

REACTIONS (7)
  - ATRIAL FIBRILLATION [None]
  - EPISTAXIS [None]
  - HODGKIN'S DISEASE [None]
  - LYMPHOMA [None]
  - MYOCARDIAL INFARCTION [None]
  - PRURITUS [None]
  - PSEUDO LYMPHOMA [None]
